FAERS Safety Report 24674955 (Version 1)
Quarter: 2024Q4

REPORT INFORMATION
  Report Type: Spontaneous
  Country: CA (occurrence: CA)
  Receive Date: 20241128
  Receipt Date: 20241128
  Transmission Date: 20250115
  Serious: Yes (Other)
  Sender: CATALYST PHARMA
  Company Number: CA-CATALYSTPHARMACEUTICALPARTNERS-CA-CATA-24-01393

PATIENT
  Age: 38 Year
  Sex: Male

DRUGS (2)
  1. FYCOMPA [Suspect]
     Active Substance: PERAMPANEL
     Indication: Seizure
     Dosage: 4 MILLIGRAM(S), (1 IN 1 DAY)
     Route: 048
  2. DILANTIN [Suspect]
     Active Substance: PHENYTOIN
     Indication: Seizure
     Dosage: 400 MILLIGRAM(S) (200 MILLIGRAM(S), 1 IN 12 HOUR)
     Route: 048

REACTIONS (3)
  - Seizure [Unknown]
  - Therapeutic response changed [Unknown]
  - Product substitution issue [Unknown]
